FAERS Safety Report 24129069 (Version 1)
Quarter: 2024Q3

REPORT INFORMATION
  Report Type: Spontaneous
  Country: CN (occurrence: None)
  Receive Date: 20240723
  Receipt Date: 20240723
  Transmission Date: 20241016
  Serious: Yes (Other)
  Sender: ASTRAZENECA
  Company Number: 2024A163173

PATIENT
  Age: 25597 Day
  Sex: Male
  Weight: 66 kg

DRUGS (3)
  1. BUDESONIDE [Suspect]
     Active Substance: BUDESONIDE
     Indication: Chronic obstructive pulmonary disease
     Route: 055
     Dates: start: 20240705, end: 20240710
  2. BUDESONIDE [Suspect]
     Active Substance: BUDESONIDE
     Indication: Lower respiratory tract infection
     Route: 055
     Dates: start: 20240705, end: 20240710
  3. TERBUTALINE SULFATE [Concomitant]
     Active Substance: TERBUTALINE SULFATE
     Route: 055
     Dates: start: 20240705, end: 20240710

REACTIONS (1)
  - Leukoplakia oral [Recovering/Resolving]

NARRATIVE: CASE EVENT DATE: 20240709
